FAERS Safety Report 11241452 (Version 1)
Quarter: 2015Q3

REPORT INFORMATION
  Report Type: Spontaneous
  Country: JP (occurrence: JP)
  Receive Date: 20150706
  Receipt Date: 20150706
  Transmission Date: 20151125
  Serious: Yes (Other)
  Sender: FDA-Public Use
  Company Number: JP-BRACCO-009212

PATIENT

DRUGS (1)
  1. IOPAMIRON [Suspect]
     Active Substance: IOPAMIDOL
     Indication: DIAGNOSTIC PROCEDURE
     Route: 042
     Dates: start: 20150624, end: 20150624

REACTIONS (1)
  - Foreign body [Unknown]

NARRATIVE: CASE EVENT DATE: 20150624
